FAERS Safety Report 7666231-2 (Version None)
Quarter: 2011Q3

REPORT INFORMATION
  Report Type: 
  Country: None (occurrence: None)
  Receive Date: 20110806
  Receipt Date: 20110325
  Transmission Date: 20111222
  Serious: No
  Sender: FDA-Public Use
  Company Number: US-ABBOTT-11P-163-0714539-00

PATIENT
  Sex: Female
  Weight: 99.88 kg

DRUGS (7)
  1. NIASPAN [Suspect]
     Indication: BLOOD CHOLESTEROL INCREASED
     Dates: start: 20110315, end: 20110325
  2. QUINAPRIL HCL [Concomitant]
     Indication: HYPERTENSION
  3. CARVEDILOL [Concomitant]
     Indication: HYPERTENSION
  4. VITAMIN D [Concomitant]
     Indication: SUPPLEMENTATION THERAPY
  5. METFORMIN HCL [Concomitant]
     Indication: DIABETES MELLITUS
  6. DILITIZEM ER [Concomitant]
     Indication: HYPERTENSION
  7. CRESTOR [Concomitant]
     Indication: BLOOD CHOLESTEROL INCREASED

REACTIONS (4)
  - HEADACHE [None]
  - ANGIOPATHY [None]
  - GASTRIC DISORDER [None]
  - PRURITUS [None]
